FAERS Safety Report 7924416-1 (Version None)
Quarter: 2011Q4

REPORT INFORMATION
  Report Type: 
  Country: None (occurrence: None)
  Receive Date: 20111117
  Receipt Date: 20110322
  Transmission Date: 20120403
  Serious: No
  Sender: FDA-Public Use
  Company Number: US-AMGEN-USASP2011015561

PATIENT
  Age: 41 Year
  Sex: Female
  Weight: 106.58 kg

DRUGS (1)
  1. ENBREL [Suspect]
     Indication: RHEUMATOID ARTHRITIS
     Dosage: UNK UNK, QWK

REACTIONS (3)
  - DRUG INEFFECTIVE [None]
  - PAIN [None]
  - FUNGAL INFECTION [None]
